FAERS Safety Report 11733144 (Version 1)
Quarter: 2015Q4

REPORT INFORMATION
  Report Type: Report from Study
  Country: BE (occurrence: BE)
  Receive Date: 20151113
  Receipt Date: 20151113
  Transmission Date: 20160304
  Serious: Yes (Other)
  Sender: FDA-Public Use
  Company Number: BE-ROCHE-1658453

PATIENT

DRUGS (4)
  1. 5-FU [Suspect]
     Active Substance: FLUOROURACIL
     Indication: COLORECTAL CANCER METASTATIC
     Dosage: FOLLOWED BY 2400 MG/M2
     Route: 040
  2. LEUCOVORIN. [Suspect]
     Active Substance: LEUCOVORIN
     Indication: COLORECTAL CANCER METASTATIC
     Dosage: L-LEUCOVORIN 200 MG/M2 OR D,L-LEUCOVORIN 400 MG/M2 INFUSED OVER 2 H
     Route: 042
  3. BEVACIZUMAB [Suspect]
     Active Substance: BEVACIZUMAB
     Indication: COLORECTAL CANCER METASTATIC
     Route: 042
  4. OXALIPLATIN. [Suspect]
     Active Substance: OXALIPLATIN
     Indication: COLORECTAL CANCER METASTATIC
     Dosage: INFUSED OVER 2 H
     Route: 042

REACTIONS (25)
  - Diarrhoea [Unknown]
  - Nausea [Unknown]
  - Neutropenia [Unknown]
  - Skin reaction [Unknown]
  - Epistaxis [Unknown]
  - Hypertension [Unknown]
  - Vomiting [Unknown]
  - Neuropathy peripheral [Unknown]
  - Thrombocytopenia [Unknown]
  - Embolism arterial [Unknown]
  - Abdominal pain [Unknown]
  - Neurotoxicity [Unknown]
  - Alanine aminotransferase increased [Unknown]
  - Mucosal inflammation [Unknown]
  - Embolism venous [Unknown]
  - Aspartate aminotransferase increased [Unknown]
  - Rash [Unknown]
  - Paraesthesia [Unknown]
  - Abdominal pain upper [Unknown]
  - Haemorrhage [Unknown]
  - Asthenia [Unknown]
  - Decreased appetite [Unknown]
  - Palmar-plantar erythrodysaesthesia syndrome [Unknown]
  - Gastrointestinal perforation [Unknown]
  - Intestinal obstruction [Unknown]
